FAERS Safety Report 24755852 (Version 1)
Quarter: 2024Q4

REPORT INFORMATION
  Report Type: Spontaneous
  Country: US (occurrence: US)
  Receive Date: 20241219
  Receipt Date: 20241219
  Transmission Date: 20250115
  Serious: No
  Sender: STALLERGENES
  Company Number: US-STALCOR-2024-AER-02848

PATIENT
  Age: 30 Year
  Sex: Female

DRUGS (16)
  1. 7 GRASS MIX [Suspect]
     Active Substance: AGROSTIS GIGANTEA POLLEN\ANTHOXANTHUM ODORATUM\DACTYLIS GLOMERATA\FESTUCA PRATENSIS\LOLIUM PERENNE\P
     Indication: Seasonal allergy
     Route: 058
  2. RED CEDAR POLLEN [Suspect]
     Active Substance: JUNIPERUS VIRGINIANA POLLEN
     Indication: Seasonal allergy
     Route: 058
  3. EASTERN 10 TREE POLLEN MIX [Suspect]
     Active Substance: ACER SACCHARUM POLLEN\BETULA NIGRA POLLEN\CARYA OVATA POLLEN\FAGUS GRANDIFOLIA POLLEN\FRAXINUS AMERI
     Indication: Seasonal allergy
     Route: 058
  4. BLACK WALNUT (JUGLANS NIGRA POLLEN) [Suspect]
     Active Substance: JUGLANS NIGRA POLLEN
     Indication: Seasonal allergy
     Route: 058
  5. SHORT AND GIANT RAGWEED POLLEN MIX [Suspect]
     Active Substance: AMBROSIA ARTEMISIIFOLIA POLLEN\AMBROSIA TRIFIDA POLLEN
     Indication: Seasonal allergy
     Route: 058
  6. 3 WEED MIX [Suspect]
     Active Substance: AMARANTHUS RETROFLEXUS POLLEN\CHENOPODIUM ALBUM POLLEN\XANTHIUM STRUMARIUM POLLEN
     Indication: Seasonal allergy
     Route: 058
  7. PLANTAIN SORREL MIX [Suspect]
     Active Substance: PLANTAGO LANCEOLATA POLLEN\RUMEX ACETOSELLA POLLEN
     Indication: Seasonal allergy
     Route: 058
  8. COMMON MUGWORT POLLEN [Suspect]
     Active Substance: ARTEMISIA VULGARIS POLLEN
     Indication: Seasonal allergy
     Route: 058
  9. RED MULBERRY POLLEN [Suspect]
     Active Substance: MORUS RUBRA POLLEN
     Indication: Seasonal allergy
     Route: 058
  10. PINE POLLEN MIX [Suspect]
     Active Substance: PINUS ECHINATA POLLEN\PINUS STROBUS POLLEN\PINUS TAEDA POLLEN
     Indication: Seasonal allergy
     Route: 058
  11. ALTERNARIA ALTERNATA [Suspect]
     Active Substance: ALTERNARIA ALTERNATA
     Indication: Seasonal allergy
     Route: 058
  12. ASPERGILLUS MIX [Suspect]
     Active Substance: ASPERGILLUS FLAVUS\ASPERGILLUS FUMIGATUS\ASPERGILLUS NIDULANS\ASPERGILLUS NIGER VAR. NIGER\EUROTIUM
     Indication: Seasonal allergy
     Route: 058
  13. PENICILLIUM MIX [Suspect]
     Active Substance: PENICILLIUM CAMEMBERTI\PENICILLIUM CHRYSOGENUM VAR. CHRYSOGENUM\PENICILLIUM DIGITATUM\PENICILLIUM RO
     Indication: Seasonal allergy
     Route: 058
  14. DILUENT (SODIUM CHLORIDE) [Suspect]
     Active Substance: SODIUM CHLORIDE
     Indication: Seasonal allergy
     Route: 058
  15. STERILE DILUENT FOR ALLERGENIC EXTRACT (ALBUMIN (HUMAN)\PHENOL) [Suspect]
     Active Substance: ALBUMIN HUMAN\PHENOL
     Indication: Seasonal allergy
     Route: 058
  16. BERMUDA GRASS, STANDARDIZED [Suspect]
     Active Substance: CYNODON DACTYLON POLLEN
     Indication: Seasonal allergy
     Route: 058

REACTIONS (1)
  - Injection site reaction [Unknown]
